FAERS Safety Report 4818851-8 (Version None)
Quarter: 2005Q4

REPORT INFORMATION
  Report Type: 
  Country: None (occurrence: None)
  Receive Date: 20051101
  Receipt Date: 20051021
  Transmission Date: 20060501
  Serious: Yes (Hospitalization)
  Sender: FDA-Public Use
  Company Number: KII-2005-0019182

PATIENT
  Age: 50 Year
  Sex: Female

DRUGS (4)
  1. OXYCONTIN [Suspect]
     Indication: BACK PAIN
     Dosage: ORAL
     Route: 048
  2. BACLOFEN [Suspect]
     Indication: BACK PAIN
     Dosage: SEE TEXT, ORAL
     Route: 048
  3. SSRI [Suspect]
  4. BENZODIAZEPINE DERIVATIVES [Suspect]

REACTIONS (12)
  - ABNORMAL BEHAVIOUR [None]
  - AGITATION [None]
  - BACK PAIN [None]
  - CONFUSIONAL STATE [None]
  - DEPRESSED LEVEL OF CONSCIOUSNESS [None]
  - DRUG WITHDRAWAL SYNDROME [None]
  - DYSKINESIA [None]
  - HYPERTENSION [None]
  - INCORRECT DOSE ADMINISTERED [None]
  - MEMORY IMPAIRMENT [None]
  - SOMNOLENCE [None]
  - TACHYCARDIA [None]
